FAERS Safety Report 13113056 (Version 1)
Quarter: 2017Q1

REPORT INFORMATION
  Report Type: Spontaneous
  Country: US (occurrence: US)
  Receive Date: 20170112
  Receipt Date: 20170112
  Transmission Date: 20170428
  Serious: Yes (Other)
  Sender: FDA-Public Use
  Company Number: None

PATIENT
  Age: 48 Year
  Sex: Male
  Weight: 132.75 kg

DRUGS (2)
  1. LEVOFLOXIN UNKNOWN [Suspect]
     Active Substance: LEVOFLOXACIN
     Indication: SINUSITIS
     Route: 048
  2. IBUPROFEN. [Concomitant]
     Active Substance: IBUPROFEN

REACTIONS (10)
  - Anosmia [None]
  - Arthralgia [None]
  - Ageusia [None]
  - Tendon rupture [None]
  - Inflammation [None]
  - Fatigue [None]
  - Dysstasia [None]
  - Condition aggravated [None]
  - Toxicity to various agents [None]
  - Pain in extremity [None]

NARRATIVE: CASE EVENT DATE: 20161028
